FAERS Safety Report 9470772 (Version 1)
Quarter: 2013Q3

REPORT INFORMATION
  Report Type: Spontaneous
  Country: GB (occurrence: GB)
  Receive Date: 20130822
  Receipt Date: 20130822
  Transmission Date: 20140515
  Serious: Yes (Other)
  Sender: FDA-Public Use
  Company Number: GB-ELI_LILLY_AND_COMPANY-GB201308004148

PATIENT
  Age: 50 Year
  Sex: Female
  Weight: 100.5 kg

DRUGS (3)
  1. FLUOXETINE [Suspect]
     Dosage: UNK
     Dates: start: 20130513, end: 20130602
  2. LACTULOSE [Concomitant]
     Dosage: UNK
     Dates: start: 20130513, end: 20130523
  3. SENNA                              /00142201/ [Concomitant]
     Dosage: UNK
     Dates: start: 20130513, end: 20130523

REACTIONS (1)
  - Restless legs syndrome [Recovered/Resolved]
